FAERS Safety Report 21413641 (Version 11)
Quarter: 2023Q1

REPORT INFORMATION
  Report Type: Spontaneous
  Country: ES (occurrence: ES)
  Receive Date: 20221006
  Receipt Date: 20230328
  Transmission Date: 20230417
  Serious: Yes (Other)
  Sender: FDA-Public Use
  Company Number: ES-JNJFOC-20220155267

PATIENT
  Sex: Female

DRUGS (3)
  1. PALIPERIDONE PALMITATE [Suspect]
     Active Substance: PALIPERIDONE PALMITATE
     Indication: Psychotic disorder
     Route: 030
  2. PALIPERIDONE PALMITATE [Suspect]
     Active Substance: PALIPERIDONE PALMITATE
  3. PALIPERIDONE PALMITATE [Suspect]
     Active Substance: PALIPERIDONE PALMITATE

REACTIONS (12)
  - Suicidal ideation [Unknown]
  - Mental impairment [Unknown]
  - Terminal state [Unknown]
  - Insomnia [Not Recovered/Not Resolved]
  - Anhedonia [Unknown]
  - Cerebral disorder [Not Recovered/Not Resolved]
  - Akathisia [Recovered/Resolved]
  - Feeling abnormal [Not Recovered/Not Resolved]
  - Bedridden [Unknown]
  - Psychotic disorder [Recovered/Resolved]
  - Cough [Unknown]
  - Vomiting [Unknown]

NARRATIVE: CASE EVENT DATE: 20211013
